FAERS Safety Report 24721514 (Version 1)
Quarter: 2024Q4

REPORT INFORMATION
  Report Type: Spontaneous
  Country: US (occurrence: US)
  Receive Date: 20241211
  Receipt Date: 20241211
  Transmission Date: 20250114
  Serious: No
  Sender: MERCK
  Company Number: US-009507513-2412USA003356

PATIENT
  Age: 5 Month
  Sex: Female

DRUGS (2)
  1. CUBICIN [Suspect]
     Active Substance: DAPTOMYCIN
     Indication: Cellulitis
     Dosage: SEVEN DAYS
  2. CUBICIN [Suspect]
     Active Substance: DAPTOMYCIN
     Indication: Eschar
     Dosage: SEVEN DAYS

REACTIONS (1)
  - Off label use [Unknown]
